FAERS Safety Report 15941835 (Version 1)
Quarter: 2019Q1

REPORT INFORMATION
  Report Type: Spontaneous
  Country: US (occurrence: US)
  Receive Date: 20190211
  Receipt Date: 20190211
  Transmission Date: 20190417
  Serious: No
  Sender: FDA-Public Use
  Company Number: None

PATIENT
  Age: 22 Year
  Sex: Male
  Weight: 78.75 kg

DRUGS (1)
  1. FINASTERIDE 1MG [Suspect]
     Active Substance: FINASTERIDE
     Indication: ALOPECIA
     Dates: start: 20190107, end: 20190118

REACTIONS (9)
  - Amnesia [None]
  - Migraine [None]
  - Genital hypoaesthesia [None]
  - Depression [None]
  - Acne [None]
  - Libido decreased [None]
  - Suicidal ideation [None]
  - Erectile dysfunction [None]
  - Seborrhoea [None]

NARRATIVE: CASE EVENT DATE: 20190206
